FAERS Safety Report 4462487-8 (Version None)
Quarter: 2004Q3

REPORT INFORMATION
  Report Type: 
  Country: None (occurrence: None)
  Receive Date: 20040928
  Receipt Date: 20040911
  Transmission Date: 20050211
  Serious: Yes (Hospitalization)
  Sender: FDA-Public Use
  Company Number: 2004065121

PATIENT
  Age: 38 Year
  Sex: Male

DRUGS (1)
  1. CEFOBID [Suspect]
     Indication: LOWER RESPIRATORY TRACT INFECTION
     Dosage: 1 GRAM (1 GRAM, 2 IN 1 D), INTRAVENOUS
     Route: 042
     Dates: start: 20040908, end: 20040908

REACTIONS (3)
  - DYSPNOEA [None]
  - EYELID OEDEMA [None]
  - FACE OEDEMA [None]
